FAERS Safety Report 21823782 (Version 1)
Quarter: 2023Q1

REPORT INFORMATION
  Report Type: Spontaneous
  Country: CH (occurrence: CH)
  Receive Date: 20230105
  Receipt Date: 20230105
  Transmission Date: 20230417
  Serious: Yes (Hospitalization, Other)
  Sender: FDA-Public Use
  Company Number: None

PATIENT
  Age: 64 Year
  Sex: Male
  Weight: 78.6 kg

DRUGS (11)
  1. CYTARABINE [Suspect]
     Active Substance: CYTARABINE
     Indication: Mantle cell lymphoma stage IV
     Dosage: 3780 MG (3 CYCLES OF R-DHAOX FROM 19.08.2022, EACH WITH 2000MG/M2 (ABSOLUTELY 3740-3820 MG) CYTOSAR)
     Route: 041
     Dates: start: 20220821, end: 20221119
  2. DEXAMETHASONE SODIUM PHOSPHATE [Suspect]
     Active Substance: DEXAMETHASONE SODIUM PHOSPHATE
     Indication: Mantle cell lymphoma stage IV
     Dosage: 40 MG, QCY (40MG/D IV ON DAYS 1-4 OF EACH DHOAX CYCLE. 3 CYCLES ON 19.8, 30.9 AND 18.11)
     Route: 042
     Dates: end: 20221031
  3. ELOXATIN [Suspect]
     Active Substance: OXALIPLATIN
     Indication: Mantle cell lymphoma stage IV
     Dosage: 250 MG (130MG/M2 IN EACH DHOAX CYCLE ON DAY 1, TOTAL 240-250MG, 19.08 240MG, 30.09. 250MG, 18.11. 24
     Route: 041
     Dates: start: 20220819, end: 20221118
  4. RITUXIMAB [Suspect]
     Active Substance: RITUXIMAB
     Indication: Mantle cell lymphoma stage IV
     Dosage: 700 MG QCY (375MG/M2 ABSOLUTE 700-700MG IN EACH R-CHOP AND R-DHAOX CYCLE, TOTAL 6 SINCE 28.07.2022:
     Route: 041
     Dates: start: 20220728, end: 20221118
  5. VALACIVIR MEPHA [Concomitant]
     Dosage: UNK, BID (1-0-1 (500)
     Route: 048
  6. NOPIL [PIRACETAM] [Concomitant]
     Indication: Antifungal prophylaxis
     Dosage: 1 DF (800MG/160MG 1 EACH ON MON, WED, FRI)
     Route: 048
  7. PANTOZOL [Concomitant]
     Active Substance: PANTOPRAZOLE SODIUM
     Dosage: 20 MG,  QD (1-0-0)
     Route: 048
  8. MOVICOL [Concomitant]
     Active Substance: POLYETHYLENE GLYCOL 3350\POTASSIUM CHLORIDE\SODIUM BICARBONATE\SODIUM CHLORIDE
     Dosage: UNK UNK, PRN (IN RESERVE BEI OBSTIPATION MAXIMAL 2/24H ; AS NECESSARY)
     Route: 048
  9. MOTILIUM [Concomitant]
     Active Substance: DOMPERIDONE
     Indication: Nausea
     Dosage: UNK, PRN (MAX 3X1/24 IN RESERVE FOR NAUSEA)
     Route: 048
  10. METOCLOPRAMIDE HYDROCHLORIDE [Concomitant]
     Active Substance: METOCLOPRAMIDE HYDROCHLORIDE
     Indication: Nausea
     Dosage: UNK, PRN (RESERVE NAUSEA, MAX. 3X30 DROPS PER DAY)
     Route: 048
  11. FILGRASTIM [Concomitant]
     Active Substance: FILGRASTIM
     Dosage: 3000000 IU (DOSE: 30000000 IU IN EACH CYCLE R-CHOP AND DHOAX, DURATION UNTIL BONE MARROW REGENERATIO
     Route: 058
     Dates: start: 20220812

REACTIONS (1)
  - Diverticulitis intestinal perforated [Recovered/Resolved with Sequelae]

NARRATIVE: CASE EVENT DATE: 20221122
